FAERS Safety Report 7214116-8 (Version None)
Quarter: 2010Q4

REPORT INFORMATION
  Report Type: 
  Country: None (occurrence: None)
  Receive Date: 20101126
  Receipt Date: 20091005
  Transmission Date: 20110411
  Serious: Yes (Other)
  Sender: FDA-Public Use
  Company Number: WAES 0908USA05032

PATIENT
  Age: 52 Year
  Sex: Female
  Weight: 71.2147 kg

DRUGS (6)
  1. FOSAMAX [Suspect]
     Dosage: PO
     Route: 048
     Dates: start: 19980101
  2. PREDNISONE [Suspect]
     Dosage: 5 MG/DAILY
  3. FOLIC ACID [Concomitant]
  4. LISINOPRIL [Concomitant]
  5. METHOTREXATE [Concomitant]
  6. TRAMADOL HCL [Concomitant]

REACTIONS (6)
  - ABDOMINAL DISCOMFORT [None]
  - JAW FRACTURE [None]
  - OSTEONECROSIS [None]
  - PAIN IN JAW [None]
  - TOOTH DISORDER [None]
  - VIITH NERVE INJURY [None]
